FAERS Safety Report 13285024 (Version 1)
Quarter: 2017Q1

REPORT INFORMATION
  Report Type: Spontaneous
  Country: US (occurrence: US)
  Receive Date: 20170301
  Receipt Date: 20170301
  Transmission Date: 20170428
  Serious: Yes (Other)
  Sender: FDA-Public Use
  Company Number: US-MYLANLABS-2017M1011595

PATIENT

DRUGS (10)
  1. TESTOSTERONE. [Concomitant]
     Active Substance: TESTOSTERONE
     Indication: PRODUCT USED FOR UNKNOWN INDICATION
     Route: 065
  2. LEVOTHYROXINE. [Suspect]
     Active Substance: LEVOTHYROXINE
     Dosage: 76 MICROG/DAY, ONCE DAILY IN THE MORNING 1 HOUR BEFORE BREAKFAST
     Route: 065
     Dates: start: 201412, end: 201507
  3. DHEA [Concomitant]
     Active Substance: PRASTERONE
     Indication: PRODUCT USED FOR UNKNOWN INDICATION
     Route: 065
  4. LIOTHYRONINE [Suspect]
     Active Substance: LIOTHYRONINE
     Indication: AUTOIMMUNE HYPOTHYROIDISM
     Dosage: 13.5MICROG/DAY; LATER INCREASED TO 15.75 MICROG/DAY
     Route: 065
     Dates: start: 201412, end: 201507
  5. LEVOTHYROXINE. [Suspect]
     Active Substance: LEVOTHYROXINE
     Indication: AUTOIMMUNE HYPOTHYROIDISM
     Dosage: 57 MICROG/DAY; LATER INCREASED TO 66.5 MICROG/DAY
     Route: 065
     Dates: start: 201412, end: 201507
  6. LEVOTHYROXINE. [Suspect]
     Active Substance: LEVOTHYROXINE
     Dosage: 66.5 MICROG/DAY; LATER INCREASED TO 76 MICROG/DAY
     Route: 065
     Dates: start: 201412, end: 201507
  7. ESTROGENS [Concomitant]
     Active Substance: ESTROGENS
     Indication: PRODUCT USED FOR UNKNOWN INDICATION
     Route: 065
  8. LIOTHYRONINE [Suspect]
     Active Substance: LIOTHYRONINE
     Dosage: 15.75MICROG/DAY; LATER INCREASED TO 18 MICROG/DAY
     Route: 065
     Dates: start: 201412, end: 201507
  9. LIOTHYRONINE [Suspect]
     Active Substance: LIOTHYRONINE
     Dosage: 18 MICROG/DAY, ONCE DAILY IN THE MORNING 1 HOUR BEFORE BREAKFAST
     Route: 065
     Dates: start: 201412, end: 201507
  10. PROGESTERONE. [Concomitant]
     Active Substance: PROGESTERONE
     Indication: PRODUCT USED FOR UNKNOWN INDICATION
     Route: 065

REACTIONS (1)
  - Hypothyroidism [Recovering/Resolving]
